FAERS Safety Report 21599583 (Version 2)
Quarter: 2022Q4

REPORT INFORMATION
  Report Type: Report from Study
  Country: IT (occurrence: AU)
  Receive Date: 20221115
  Receipt Date: 20221115
  Transmission Date: 20230113
  Serious: Yes (Death, Life-Threatening, Hospitalization, Other)
  Sender: FDA-Public Use
  Company Number: IT-ABBVIE-4193403

PATIENT
  Age: 65 Year
  Sex: Male

DRUGS (11)
  1. VENETOCLAX [Suspect]
     Active Substance: VENETOCLAX
     Indication: Acute myeloid leukaemia
     Route: 048
     Dates: start: 20220822, end: 20221021
  2. POSACONAZOLE [Concomitant]
     Active Substance: POSACONAZOLE
     Indication: Antifungal prophylaxis
     Dosage: 300 MILLIGRAM
     Dates: start: 20220822
  3. POSACONAZOLE [Concomitant]
     Active Substance: POSACONAZOLE
     Indication: Antifungal prophylaxis
     Dates: start: 20220822
  4. trimetoprim + sulfametoxazole (bactrim) [Concomitant]
     Indication: Antibiotic prophylaxis
     Dosage: 1 TABLET
     Dates: start: 20220822
  5. trimetoprim + sulfametoxazole (bactrim) [Concomitant]
     Indication: Antibiotic prophylaxis
     Dosage: 1 TABLET
     Dates: start: 20220822
  6. ALLOPURINOL [Concomitant]
     Active Substance: ALLOPURINOL
     Indication: Prophylaxis
     Dates: start: 20220822
  7. DECITABINE [Concomitant]
     Active Substance: DECITABINE
     Indication: Acute myeloid leukaemia
     Dosage: LAST DOSE ADMINISTERED: 20 MG/SQM/DAY
     Dates: start: 20220822
  8. DECITABINE [Concomitant]
     Active Substance: DECITABINE
     Indication: Acute myeloid leukaemia
     Dates: start: 20220822, end: 20220930
  9. ACYCLOVIR [Concomitant]
     Active Substance: ACYCLOVIR
     Indication: Antiviral prophylaxis
     Dosage: 400 MG
     Route: 048
     Dates: start: 20220822
  10. ACYCLOVIR [Concomitant]
     Active Substance: ACYCLOVIR
     Indication: Antiviral prophylaxis
     Route: 048
     Dates: start: 20220822
  11. allopurinole [Concomitant]
     Indication: Prophylaxis
     Dosage: 300 MILLIGRAM
     Dates: start: 20220822

REACTIONS (5)
  - Endocarditis [Fatal]
  - Cytopenia [Unknown]
  - Interstitial lung disease [Not Recovered/Not Resolved]
  - Peripheral ischaemia [Unknown]
  - Haematotoxicity [Unknown]

NARRATIVE: CASE EVENT DATE: 20221028
